FAERS Safety Report 4553288-0 (Version None)
Quarter: 2005Q1

REPORT INFORMATION
  Report Type: 
  Country: None (occurrence: None)
  Receive Date: 20050113
  Receipt Date: 20050104
  Transmission Date: 20050727
  Serious: Yes (Hospitalization, Other)
  Sender: FDA-Public Use
  Company Number: 2005-01-0209

PATIENT
  Age: 64 Year
  Sex: Male

DRUGS (4)
  1. CLARITIN [Suspect]
     Indication: RHINITIS
     Dosage: 10 MG ORAL
     Route: 048
     Dates: start: 20041116, end: 20041203
  2. FLOMOX (CEFCAPENE PIVOXIL HCL) [Concomitant]
  3. NOSCAPINE [Concomitant]
  4. AMBROXOL HYDROCHLORIDE [Concomitant]

REACTIONS (5)
  - CHROMATURIA [None]
  - HEPATIC FUNCTION ABNORMAL [None]
  - HEPATITIS [None]
  - JAUNDICE [None]
  - LYMPHOCYTE STIMULATION TEST POSITIVE [None]
